FAERS Safety Report 6594919-3 (Version None)
Quarter: 2010Q1

REPORT INFORMATION
  Report Type: 
  Country: None (occurrence: None)
  Receive Date: 20100218
  Receipt Date: 20100218
  Transmission Date: 20100710
  Serious: No
  Sender: FDA-Public Use
  Company Number: None

PATIENT
  Age: 57 Year
  Sex: Male
  Weight: 102.0593 kg

DRUGS (2)
  1. POLYMYCIN B SULFATE [Suspect]
     Indication: PNEUMONIA
     Dosage: 500,000 IU BID IV
     Route: 042
     Dates: start: 20090226, end: 20090302
  2. VANCOMYCIN [Suspect]
     Indication: CELLULITIS
     Dosage: 1250 MG BID IV
     Route: 042
     Dates: start: 20090218, end: 20090228

REACTIONS (6)
  - AZOTAEMIA [None]
  - DEPRESSED LEVEL OF CONSCIOUSNESS [None]
  - DIALYSIS [None]
  - RENAL FAILURE ACUTE [None]
  - RENAL TUBULAR NECROSIS [None]
  - UNRESPONSIVE TO STIMULI [None]
